FAERS Safety Report 9200384 (Version 1)
Quarter: 2013Q1

REPORT INFORMATION
  Report Type: Report from Study
  Country: BE (occurrence: BE)
  Receive Date: 20130329
  Receipt Date: 20130329
  Transmission Date: 20140127
  Serious: Yes (Hospitalization)
  Sender: FDA-Public Use
  Company Number: BE-ABBOTT-13P-013-1033953-00

PATIENT
  Sex: Female
  Weight: 78.5 kg

DRUGS (1)
  1. HUMIRA [Suspect]
     Indication: RHEUMATOID ARTHRITIS
     Dates: start: 20110209

REACTIONS (2)
  - Knee arthroplasty [Unknown]
  - Osteoarthritis [Recovered/Resolved]
